FAERS Safety Report 24212136 (Version 1)
Quarter: 2024Q3

REPORT INFORMATION
  Report Type: Spontaneous
  Country: ES (occurrence: ES)
  Receive Date: 20240815
  Receipt Date: 20240815
  Transmission Date: 20241017
  Serious: Yes (Hospitalization, Other)
  Sender: CHEPLAPHARM
  Company Number: None

PATIENT
  Age: 49 Year
  Sex: Male
  Weight: 72 kg

DRUGS (8)
  1. PREDNISONE [Interacting]
     Active Substance: PREDNISONE
     Indication: Prophylaxis against transplant rejection
     Dosage: DAILY DOSE: 5 MILLIGRAM
     Route: 048
     Dates: start: 202308
  2. VALGANCICLOVIR [Suspect]
     Active Substance: VALGANCICLOVIR
     Dosage: DAILY DOSE: 450 MILLIGRAM
     Dates: start: 20231111
  3. EVEROLIMUS [Interacting]
     Active Substance: EVEROLIMUS
     Indication: Prophylaxis against transplant rejection
     Dosage: DAILY DOSE: 2 MILLIGRAM
     Route: 048
     Dates: start: 202401
  4. CYCLOSPORINE [Interacting]
     Active Substance: CYCLOSPORINE
     Indication: Prophylaxis against transplant rejection
     Dosage: DAILY DOSE: 250 MILLIGRAM
     Route: 048
     Dates: start: 202401
  5. CIDOFOVIR [Concomitant]
     Active Substance: CIDOFOVIR
  6. IGVI [Concomitant]
     Route: 042
  7. CEFEPIME [Concomitant]
     Active Substance: CEFEPIME HYDROCHLORIDE
     Dosage: DAILY DOSE: 1 GRAM
  8. AZITHROMYCIN [Concomitant]
     Active Substance: AZITHROMYCIN
     Dosage: DAILY DOSE: 500 MILLIGRAM

REACTIONS (5)
  - Rhinovirus infection [Recovered/Resolved]
  - Metapneumovirus pneumonia [Unknown]
  - Diarrhoea [Unknown]
  - Human polyomavirus infection [Unknown]
  - Haemophilus infection [Unknown]

NARRATIVE: CASE EVENT DATE: 20231101
